FAERS Safety Report 6065757-5 (Version None)
Quarter: 2009Q1

REPORT INFORMATION
  Report Type: 
  Country: None (occurrence: None)
  Receive Date: 20090202
  Receipt Date: 20090129
  Transmission Date: 20090719
  Serious: Yes (Hospitalization)
  Sender: FDA-Public Use
  Company Number: 2008AL005372

PATIENT
  Age: 73 Year
  Sex: Male
  Weight: 127.0072 kg

DRUGS (11)
  1. DIGOXIN [Suspect]
     Indication: CARDIAC OPERATION
     Dosage: 0.25MG, DAILY, PO
     Route: 048
     Dates: start: 20020101
  2. LASIX [Concomitant]
  3. METFORMIN HCL [Concomitant]
  4. HUMULIN [Concomitant]
  5. LISINOPRIL [Concomitant]
  6. ACETYLSALICYLIC ACID SRT [Concomitant]
  7. COUMADIN [Concomitant]
  8. LEVOTHYROXINE SODIUM [Concomitant]
  9. ZOLPIDEM [Concomitant]
  10. VITAMIN B-12 [Concomitant]
  11. VITAMINS [Concomitant]

REACTIONS (7)
  - ABASIA [None]
  - FLUID RETENTION [None]
  - HALLUCINATION [None]
  - HEART RATE DECREASED [None]
  - HEART RATE INCREASED [None]
  - HEART RATE IRREGULAR [None]
  - MALAISE [None]
